FAERS Safety Report 20186136 (Version 2)
Quarter: 2021Q4

REPORT INFORMATION
  Report Type: Spontaneous
  Country: CA (occurrence: None)
  Receive Date: 20211215
  Receipt Date: 20211223
  Transmission Date: 20220303
  Serious: Yes (Hospitalization, Other)
  Sender: FDA-Public Use
  Company Number: CA-ROCHE-2976858

PATIENT
  Age: 63 Year
  Sex: Male

DRUGS (2)
  1. RIVOTRIL [Suspect]
     Active Substance: CLONAZEPAM
     Indication: Sleep disorder
     Route: 065
  2. RIVOTRIL [Suspect]
     Active Substance: CLONAZEPAM
     Indication: Stress

REACTIONS (5)
  - Hypertension [Unknown]
  - Seizure [Unknown]
  - Intentional product misuse [Unknown]
  - Off label use [Unknown]
  - Incorrect product administration duration [Unknown]
